FAERS Safety Report 10024802 (Version 1)
Quarter: 2014Q1

REPORT INFORMATION
  Report Type: Spontaneous
  Country: US (occurrence: None)
  Receive Date: 20140319
  Receipt Date: 20140319
  Transmission Date: 20141002
  Serious: Yes (Hospitalization)
  Sender: FDA-Public Use
  Company Number: None

PATIENT
  Age: 46 Year
  Sex: Female

DRUGS (5)
  1. TYVASO [Suspect]
     Route: 055
     Dates: start: 20140219, end: 20140226
  2. SILDENAFIL [Concomitant]
  3. FURESEMIDE [Concomitant]
  4. WARFARIN [Concomitant]
  5. DIGOXIN [Concomitant]

REACTIONS (3)
  - Dizziness [None]
  - Hepatic pain [None]
  - Vertigo [None]
